FAERS Safety Report 6661384-7 (Version None)
Quarter: 2010Q1

REPORT INFORMATION
  Report Type: 
  Country: None (occurrence: None)
  Receive Date: 20100331
  Receipt Date: 20100325
  Transmission Date: 20100710
  Serious: Yes (Life-Threatening, Hospitalization)
  Sender: FDA-Public Use
  Company Number: PHHY2010US18672

PATIENT

DRUGS (12)
  1. EXELON [Suspect]
     Indication: PARKINSON'S DISEASE
     Route: 062
  2. EXELON [Suspect]
     Indication: PARKINSON'S DISEASE
     Dosage: 1.5 MG, QD
     Route: 048
     Dates: end: 20100324
  3. WARFARIN SODIUM [Concomitant]
  4. LIPITOR [Concomitant]
  5. FOSAMAX [Concomitant]
  6. SINEMET [Concomitant]
  7. SERTRALINE HCL [Concomitant]
  8. TRAMADOL HCL [Concomitant]
  9. ISOMEL [Concomitant]
  10. ALENDRONATE SODIUM [Concomitant]
  11. IRON [Concomitant]
  12. VITAMINS [Concomitant]

REACTIONS (7)
  - ABDOMINAL MASS [None]
  - ABDOMINAL PAIN [None]
  - ANAEMIA [None]
  - ASTHENIA [None]
  - DIZZINESS [None]
  - HAEMOGLOBIN DECREASED [None]
  - RED BLOOD CELL COUNT DECREASED [None]
